FAERS Safety Report 9016841 (Version 2)
Quarter: 2013Q1

REPORT INFORMATION
  Report Type: Report from Study
  Country: FR (occurrence: FR)
  Receive Date: 20130117
  Receipt Date: 20130211
  Transmission Date: 20140127
  Serious: Yes (Hospitalization)
  Sender: FDA-Public Use
  Company Number: PHHO2013FR000963

PATIENT
  Sex: 0

DRUGS (11)
  1. CGP 57148B [Suspect]
     Indication: ACUTE LYMPHOCYTIC LEUKAEMIA
     Dosage: 300 MG, QD
     Dates: start: 20121214
  2. ASPARAGINE [Concomitant]
     Dosage: 25250 IU, 1 DOSE PI
     Dates: start: 20121219
  3. VINCRISTINE [Concomitant]
     Dosage: 1.5 MG/M2, QW
     Route: 042
     Dates: start: 20130108
  4. DEXAMETHASONE [Concomitant]
     Dosage: 20 MG, UNK
  5. DOXORUBIN [Concomitant]
     Dosage: 25 MG/M2, QW
     Dates: start: 20130108
  6. ZOFRAN [Concomitant]
     Indication: ANTIEMETIC SUPPORTIVE CARE
     Dosage: 8 MG, QD
     Route: 042
     Dates: start: 20121214, end: 20121218
  7. ATOVAQUONE [Concomitant]
     Indication: PNEUMOCYSTIS JIROVECII PNEUMONIA
     Dosage: UNK
     Dates: start: 20121214, end: 20121219
  8. PREDNISOLONE [Concomitant]
     Dosage: 10 MG, UNK
     Dates: start: 20121218
  9. ARACYTINE [Concomitant]
     Dosage: 30 MG, UNK
     Dates: start: 20121218
  10. METHOTREXATE [Concomitant]
     Dosage: 12 MG, UNK
  11. VP-16 [Concomitant]
     Dosage: 408 MG, UNK

REACTIONS (2)
  - Febrile bone marrow aplasia [Recovering/Resolving]
  - Vomiting [Recovering/Resolving]
